FAERS Safety Report 6396380-0 (Version None)
Quarter: 2009Q4

REPORT INFORMATION
  Report Type: 
  Country: None (occurrence: None)
  Receive Date: 20091012
  Receipt Date: 20091002
  Transmission Date: 20100525
  Serious: Yes (Other)
  Sender: FDA-Public Use
  Company Number: FR-EISAI INC.-E3810-03192-SPO-FR

PATIENT
  Age: 46 Year
  Sex: Male

DRUGS (2)
  1. PARIET (RABEPRAZOLE) [Suspect]
     Route: 048
  2. PROTON PUMP INHIBITOR [Concomitant]

REACTIONS (1)
  - LEUKOCYTOSIS [None]
